FAERS Safety Report 9555951 (Version 3)
Quarter: 2013Q4

REPORT INFORMATION
  Report Type: Spontaneous
  Country: JP (occurrence: JP)
  Receive Date: 20130926
  Receipt Date: 20131010
  Transmission Date: 20140711
  Serious: Yes (Hospitalization)
  Sender: FDA-Public Use
  Company Number: JP-MALLINCKRODT-T201304426

PATIENT
  Age: 55 Year
  Sex: Female
  Weight: 43 kg

DRUGS (1)
  1. OPTIRAY [Suspect]
     Indication: COMPUTERISED TOMOGRAM
     Dosage: 90 ML, SINGLE
     Route: 042
     Dates: start: 20130909, end: 20130909

REACTIONS (2)
  - Laryngeal oedema [Recovered/Resolved]
  - Laryngeal discomfort [Recovering/Resolving]
